FAERS Safety Report 10005000 (Version 3)
Quarter: 2014Q2

REPORT INFORMATION
  Report Type: Spontaneous
  Country: US (occurrence: US)
  Receive Date: 20140312
  Receipt Date: 20140519
  Transmission Date: 20141212
  Serious: Yes (Other)
  Sender: FDA-Public Use
  Company Number: US-009507513-1403USA003351

PATIENT
  Age: 16 Year
  Sex: Female
  Weight: 68.93 kg

DRUGS (1)
  1. NEXPLANON [Suspect]
     Indication: CONTRACEPTION
     Dosage: 1 ROD UP TO 3 YEARS, LEFT ARM
     Route: 059
     Dates: start: 20121128

REACTIONS (9)
  - Abortion spontaneous [Unknown]
  - Unintended pregnancy [Recovered/Resolved]
  - Device dislocation [Unknown]
  - Implant site erythema [Unknown]
  - Implant site swelling [Unknown]
  - Implant site haematoma [Unknown]
  - Implant site reaction [Unknown]
  - Device breakage [Unknown]
  - Device difficult to use [Recovered/Resolved]
